FAERS Safety Report 20832357 (Version 2)
Quarter: 2022Q2

REPORT INFORMATION
  Report Type: Spontaneous
  Country: US (occurrence: None)
  Receive Date: 20220516
  Receipt Date: 20220606
  Transmission Date: 20220721
  Serious: No
  Sender: FDA-Public Use
  Company Number: US-Merck Healthcare KGaA-9318990

PATIENT
  Sex: Female
  Weight: 65 kg

DRUGS (1)
  1. CETROTIDE [Suspect]
     Active Substance: CETRORELIX ACETATE
     Indication: In vitro fertilisation
     Dosage: CETROTIDE
     Dates: start: 20220425, end: 20220502

REACTIONS (8)
  - Abdominal distension [Not Recovered/Not Resolved]
  - Injury associated with device [Recovered/Resolved]
  - Needle track marks [Unknown]
  - Injection site extravasation [Unknown]
  - Injection site induration [Unknown]
  - Injection site bruising [Not Recovered/Not Resolved]
  - Needle issue [Unknown]
  - Syringe issue [Unknown]
